FAERS Safety Report 26174258 (Version 1)
Quarter: 2025Q4

REPORT INFORMATION
  Report Type: Spontaneous
  Country: US (occurrence: US)
  Receive Date: 20251218
  Receipt Date: 20251218
  Transmission Date: 20260118
  Serious: No
  Sender: ALVOGEN
  Company Number: US-ALVOGEN-2025098242

PATIENT
  Age: 63 Year
  Sex: Male

DRUGS (2)
  1. FENTANYL [Suspect]
     Active Substance: FENTANYL
     Indication: Pain management
     Dosage: STARTED A COUPLE OF MONTHS AGO
     Route: 062
  2. FENTANYL [Suspect]
     Active Substance: FENTANYL
     Indication: Pain management
     Route: 062
     Dates: start: 20250617

REACTIONS (3)
  - Device malfunction [Unknown]
  - Device adhesion issue [Unknown]
  - Drug ineffective [Unknown]

NARRATIVE: CASE EVENT DATE: 20250617
